FAERS Safety Report 6409443-8 (Version None)
Quarter: 2009Q4

REPORT INFORMATION
  Report Type: 
  Country: None (occurrence: None)
  Receive Date: 20091019
  Receipt Date: 20091019
  Transmission Date: 20100525
  Serious: Yes (Other)
  Sender: FDA-Public Use
  Company Number: None

PATIENT
  Age: 36 Year
  Sex: Female
  Weight: 136.0791 kg

DRUGS (2)
  1. PROAIR HFA [Suspect]
     Indication: ASTHMA
     Dosage: 2 PUFFS 4X DAILY INHAL
     Route: 055
     Dates: start: 20091001, end: 20091016
  2. PROAIR HFA [Suspect]
     Indication: SEASONAL ALLERGY
     Dosage: 2 PUFFS 4X DAILY INHAL
     Route: 055
     Dates: start: 20091001, end: 20091016

REACTIONS (7)
  - BACK PAIN [None]
  - CHEST DISCOMFORT [None]
  - DRUG EFFECT DECREASED [None]
  - DYSPNOEA [None]
  - FEELING ABNORMAL [None]
  - INSOMNIA [None]
  - PALPITATIONS [None]
